FAERS Safety Report 14739683 (Version 2)
Quarter: 2018Q2

REPORT INFORMATION
  Report Type: Report from Study
  Country: None (occurrence: US)
  Receive Date: 20180410
  Receipt Date: 20180419
  Transmission Date: 20180711
  Serious: Yes (Hospitalization, Other)
  Sender: FDA-Public Use
  Company Number: US-ABBVIE-18K-163-2316885-00

PATIENT
  Age: 54 Year
  Sex: Male
  Weight: 70.37 kg

DRUGS (6)
  1. IBUPROFEN. [Suspect]
     Active Substance: IBUPROFEN
     Indication: ANKYLOSING SPONDYLITIS
     Route: 065
     Dates: start: 1998, end: 20180407
  2. LISINOPRIL/HYDROCHLOORTHIAZIDE [Suspect]
     Active Substance: HYDROCHLOROTHIAZIDE\LISINOPRIL
     Indication: HYPERTENSION
     Route: 065
     Dates: start: 201803, end: 20180407
  3. HUMIRA [Suspect]
     Active Substance: ADALIMUMAB
     Indication: ANKYLOSING SPONDYLITIS
     Route: 058
     Dates: start: 20180323, end: 20180323
  4. HUMIRA [Suspect]
     Active Substance: ADALIMUMAB
     Route: 058
     Dates: start: 20180409, end: 201804
  5. NORCO [Concomitant]
     Active Substance: ACETAMINOPHEN\HYDROCODONE BITARTRATE
     Indication: ANKYLOSING SPONDYLITIS
  6. NAPROXEN. [Concomitant]
     Active Substance: NAPROXEN
     Indication: ANKYLOSING SPONDYLITIS

REACTIONS (7)
  - Dyspnoea [Recovering/Resolving]
  - Arthralgia [Unknown]
  - Hypotension [Recovered/Resolved]
  - Dehydration [Recovered/Resolved]
  - Fatigue [Unknown]
  - Renal failure [Recovered/Resolved]
  - Hypertension [Recovered/Resolved]

NARRATIVE: CASE EVENT DATE: 201803
